FAERS Safety Report 8044304-2 (Version None)
Quarter: 2012Q1

REPORT INFORMATION
  Report Type: 
  Country: None (occurrence: None)
  Receive Date: 20120113
  Receipt Date: 20120110
  Transmission Date: 20120608
  Serious: Yes (Life-Threatening, Hospitalization, Other)
  Sender: FDA-Public Use
  Company Number: MX-SANOFI-AVENTIS-2011SA050921

PATIENT
  Age: 57 Year
  Sex: Male
  Weight: 96 kg

DRUGS (9)
  1. LANTUS [Suspect]
     Indication: TYPE 2 DIABETES MELLITUS
     Route: 058
     Dates: start: 20070101, end: 20110701
  2. LANTUS [Suspect]
     Dosage: 20 IU IN THE MORNING AND 20 IU AT NIGHT
     Route: 058
     Dates: start: 20110701
  3. SHORANT [Suspect]
     Indication: TYPE 2 DIABETES MELLITUS
     Route: 058
     Dates: start: 20070101, end: 20110701
  4. AMLODIPINE [Concomitant]
     Route: 048
  5. GLYBURIDE [Concomitant]
     Indication: TYPE 2 DIABETES MELLITUS
     Route: 048
     Dates: start: 19990101, end: 20030101
  6. ALL OTHER THERAPEUTIC PRODUCTS [Concomitant]
     Indication: TYPE 2 DIABETES MELLITUS
     Route: 058
     Dates: start: 20030101, end: 20070101
  7. MICARDIS [Concomitant]
     Route: 048
  8. NPH INSULIN [Concomitant]
     Indication: TYPE 2 DIABETES MELLITUS
     Route: 058
     Dates: start: 20030101, end: 20070101
  9. ALL OTHER THERAPEUTIC PRODUCTS [Concomitant]
     Dates: start: 20100101, end: 20100101

REACTIONS (9)
  - MUSCULAR WEAKNESS [None]
  - FALL [None]
  - INSOMNIA [None]
  - DRUG ADMINISTRATION ERROR [None]
  - RENAL FAILURE CHRONIC [None]
  - HYPERGLYCAEMIA [None]
  - GENERALISED OEDEMA [None]
  - ACUTE PULMONARY OEDEMA [None]
  - WEIGHT INCREASED [None]
